FAERS Safety Report 5091871-7 (Version None)
Quarter: 2006Q3

REPORT INFORMATION
  Report Type: 
  Country: None (occurrence: None)
  Receive Date: 20060829
  Receipt Date: 20060727
  Transmission Date: 20061208
  Serious: Yes (Other)
  Sender: FDA-Public Use
  Company Number: US-BRISTOL-MYERS SQUIBB COMPANY-13459433

PATIENT
  Sex: Female

DRUGS (2)
  1. ERBITUX [Suspect]
     Indication: COLON CANCER
     Route: 042
  2. BENADRYL [Concomitant]
     Indication: PREMEDICATION
     Route: 042

REACTIONS (1)
  - WHEEZING [None]
